FAERS Safety Report 8238225-X (Version None)
Quarter: 2012Q1

REPORT INFORMATION
  Report Type: 
  Country: None (occurrence: None)
  Receive Date: 20120327
  Receipt Date: 20120326
  Transmission Date: 20120608
  Serious: Yes (Hospitalization)
  Sender: FDA-Public Use
  Company Number: PHFR2012IE001119

PATIENT
  Sex: Male

DRUGS (1)
  1. CLOZARIL [Suspect]
     Indication: SCHIZOPHRENIA
     Dosage: 500 MG (100 MG MORNING 400 MG AT NIGHT)
     Route: 048
     Dates: start: 20110520

REACTIONS (5)
  - DEHYDRATION [None]
  - PILONIDAL CYST [None]
  - RHABDOMYOLYSIS [None]
  - CIRCULATORY COLLAPSE [None]
  - RENAL FAILURE ACUTE [None]
